FAERS Safety Report 23920359 (Version 1)
Quarter: 2024Q2

REPORT INFORMATION
  Report Type: Spontaneous
  Country: CN (occurrence: CN)
  Receive Date: 20240530
  Receipt Date: 20240530
  Transmission Date: 20240716
  Serious: Yes (Other)
  Sender: FDA-Public Use
  Company Number: CN-ELI_LILLY_AND_COMPANY-CN202405014039

PATIENT
  Age: 68 Year
  Sex: Male
  Weight: 64 kg

DRUGS (5)
  1. DULOXETINE HYDROCHLORIDE [Suspect]
     Active Substance: DULOXETINE HYDROCHLORIDE
     Indication: Depression
     Dosage: 120 MG, EACH MORNING
     Route: 048
     Dates: start: 20240419, end: 20240505
  2. DULOXETINE HYDROCHLORIDE [Suspect]
     Active Substance: DULOXETINE HYDROCHLORIDE
     Dosage: 100 MG, EACH MORNING
     Route: 048
     Dates: start: 20240506
  3. DULOXETINE HYDROCHLORIDE [Suspect]
     Active Substance: DULOXETINE HYDROCHLORIDE
     Dosage: 60 MG, EACH MORNING
     Route: 048
     Dates: start: 20240510
  4. LORAZEPAM [Suspect]
     Active Substance: LORAZEPAM
     Indication: Depression
     Dosage: 1 MG, EACH EVENING
     Route: 048
     Dates: start: 20240419, end: 20240521
  5. OLANZAPINE [Suspect]
     Active Substance: OLANZAPINE
     Indication: Depression
     Dosage: 3.75 MG, EACH EVENING
     Route: 048
     Dates: start: 20240419, end: 20240521

REACTIONS (3)
  - Intestinal obstruction [Not Recovered/Not Resolved]
  - Abdominal distension [Not Recovered/Not Resolved]
  - Constipation [Not Recovered/Not Resolved]

NARRATIVE: CASE EVENT DATE: 20240429
